FAERS Safety Report 9114844 (Version 1)
Quarter: 2013Q1

REPORT INFORMATION
  Report Type: Spontaneous
  Country: US (occurrence: None)
  Receive Date: 20130128
  Receipt Date: 20130128
  Transmission Date: 20140127
  Serious: Yes (Death, Hospitalization)
  Sender: FDA-Public Use
  Company Number: UTC-028217

PATIENT
  Age: 61 Year
  Sex: Female
  Weight: 62.7 kg

DRUGS (1)
  1. TYVASO [Suspect]
     Indication: COR PULMONALE CHRONIC
     Route: 055
     Dates: start: 20130102, end: 201301

REACTIONS (2)
  - Dehydration [None]
  - Asthenia [None]
